FAERS Safety Report 6725274-3 (Version None)
Quarter: 2010Q2

REPORT INFORMATION
  Report Type: 
  Country: None (occurrence: None)
  Receive Date: 20100514
  Receipt Date: 20100506
  Transmission Date: 20101027
  Serious: Yes (Hospitalization)
  Sender: FDA-Public Use
  Company Number: FR-EISAI INC.-E3810-03787-SPO-FR

PATIENT
  Sex: Male
  Weight: 86 kg

DRUGS (5)
  1. PARIET (RABEPRAZOLE) [Suspect]
     Route: 048
     Dates: start: 20100326, end: 20100331
  2. ACETYLCYSTEINE [Suspect]
     Route: 048
     Dates: start: 20100326
  3. PNEUMOREL [Suspect]
     Route: 048
     Dates: start: 20100326, end: 20100331
  4. LOGIMAX [Concomitant]
     Route: 048
  5. ZOLPIDEM [Concomitant]
     Route: 048

REACTIONS (1)
  - HALLUCINATION, VISUAL [None]
